FAERS Safety Report 12216512 (Version 1)
Quarter: 2016Q1

REPORT INFORMATION
  Report Type: Spontaneous
  Country: US (occurrence: US)
  Receive Date: 20160329
  Receipt Date: 20160329
  Transmission Date: 20160526
  Serious: No
  Sender: FDA-Public Use
  Company Number: US-TEVA-584743USA

PATIENT
  Age: 65 Year
  Sex: Female
  Weight: 59.02 kg

DRUGS (1)
  1. MINOCYCLINE [Suspect]
     Active Substance: MINOCYCLINE\MINOCYCLINE HYDROCHLORIDE
     Indication: ACNE
     Dosage: 200 MILLIGRAM DAILY;
     Route: 065
     Dates: start: 20140708, end: 20140729

REACTIONS (4)
  - Tongue coated [Recovered/Resolved]
  - Malaise [Unknown]
  - Nausea [Unknown]
  - Tongue discolouration [Recovered/Resolved]

NARRATIVE: CASE EVENT DATE: 201407
